FAERS Safety Report 8991467 (Version 3)
Quarter: 2013Q4

REPORT INFORMATION
  Report Type: Spontaneous
  Country: US (occurrence: US)
  Receive Date: 20121231
  Receipt Date: 20131118
  Transmission Date: 20140711
  Serious: Yes (Death, Hospitalization)
  Sender: FDA-Public Use
  Company Number: US-BIOGENIDEC-2012BI063739

PATIENT
  Age: 60 Year
  Sex: Female

DRUGS (7)
  1. TYSABRI [Suspect]
     Indication: MULTIPLE SCLEROSIS
     Route: 042
     Dates: start: 20110526, end: 20121128
  2. BACLOFEN [Concomitant]
  3. CLONAZEPAM [Concomitant]
  4. GABAPENTIN [Concomitant]
  5. DITROPAN [Concomitant]
  6. DILTIAZEM [Concomitant]
  7. SERTRALINE [Concomitant]

REACTIONS (3)
  - Multi-organ failure [Unknown]
  - Convulsion [Unknown]
  - Brain injury [Fatal]
